FAERS Safety Report 9583607 (Version 1)
Quarter: 2013Q4

REPORT INFORMATION
  Report Type: Spontaneous
  Country: US (occurrence: US)
  Receive Date: 20131002
  Receipt Date: 20131002
  Transmission Date: 20140711
  Serious: No
  Sender: FDA-Public Use
  Company Number: US-AMGEN-USASP2013048456

PATIENT
  Age: 65 Year
  Sex: Female

DRUGS (2)
  1. ENBREL [Suspect]
     Indication: RHEUMATOID ARTHRITIS
     Dosage: UNK,  QWK
     Route: 065
     Dates: start: 20120221
  2. PREDNISONE [Concomitant]
     Dosage: UNK

REACTIONS (1)
  - Haemorrhage subcutaneous [Not Recovered/Not Resolved]
